FAERS Safety Report 7341059-1 (Version None)
Quarter: 2011Q1

REPORT INFORMATION
  Report Type: 
  Country: None (occurrence: None)
  Receive Date: 20110309
  Receipt Date: 20110225
  Transmission Date: 20110831
  Serious: Yes (Hospitalization, Other)
  Sender: FDA-Public Use
  Company Number: PHHY2011TR06597

PATIENT
  Age: 32 Year
  Sex: Female

DRUGS (5)
  1. WARFARIN SODIUM [Suspect]
     Dosage: 5 MG, QD
  2. VITAMIN K TAB [Concomitant]
  3. WARFARIN SODIUM [Suspect]
     Dosage: 10 MG, QD
  4. ENOXAPARIN SODIUM [Concomitant]
  5. FRESH FROZEN PLASMA [Concomitant]

REACTIONS (15)
  - OVARIAN HAEMORRHAGE [None]
  - DIZZINESS [None]
  - ABDOMINAL PAIN UPPER [None]
  - PALPITATIONS [None]
  - WHITE BLOOD CELL COUNT INCREASED [None]
  - INTRA-ABDOMINAL HAEMORRHAGE [None]
  - LOCALISED INTRAABDOMINAL FLUID COLLECTION [None]
  - HAEMOGLOBIN DECREASED [None]
  - OVARIAN CYST [None]
  - HEART RATE INCREASED [None]
  - ABDOMINAL REBOUND TENDERNESS [None]
  - HAEMATOCRIT DECREASED [None]
  - HYPOTENSION [None]
  - ABDOMINAL TENDERNESS [None]
  - OVERDOSE [None]
